FAERS Safety Report 24527294 (Version 1)
Quarter: 2024Q4

REPORT INFORMATION
  Report Type: Report from Study
  Country: US (occurrence: US)
  Receive Date: 20241021
  Receipt Date: 20241021
  Transmission Date: 20250114
  Serious: No
  Sender: ROCHE
  Company Number: US-ROCHE-3547269

PATIENT
  Age: 82 Year
  Sex: Male

DRUGS (19)
  1. COTELLIC [Suspect]
     Active Substance: COBIMETINIB
     Indication: Pancreatic carcinoma
     Route: 048
     Dates: start: 20240410
  2. GEMCITABINE HYDROCHLORIDE [Concomitant]
     Active Substance: GEMCITABINE HYDROCHLORIDE
  3. DEXAMETHASONE SODIUM PHOSPHATE [Concomitant]
     Active Substance: DEXAMETHASONE SODIUM PHOSPHATE
  4. GABAPENTIN [Concomitant]
     Active Substance: GABAPENTIN
  5. GRANISETRON HYDROCHLORIDE [Concomitant]
     Active Substance: GRANISETRON HYDROCHLORIDE
  6. HYDROXYZINE HYDROCHLORIDE [Concomitant]
     Active Substance: HYDROXYZINE HYDROCHLORIDE
  7. PROCHLORPERAZINE MALEATE [Concomitant]
     Active Substance: PROCHLORPERAZINE MALEATE
  8. SERTACONAZOLE NITRATE [Concomitant]
     Active Substance: SERTACONAZOLE NITRATE
  9. COENZYME Q10 [Concomitant]
     Active Substance: DIETARY SUPPLEMENT\UBIDECARENONE
  10. DEXAMETHASONE [Concomitant]
     Active Substance: DEXAMETHASONE
  11. FLUBLOK QUADRIVALENT NOS [Concomitant]
     Active Substance: INFLUENZA VIRUS VACCINE
  12. FLUZONE QUADRIVALENT NOS [Concomitant]
     Active Substance: INFLUENZA A VIRUS A/CALIFORNIA/7/2009 X-179A (H1N1) ANTIGEN (FORMALDEHYDE INACTIVATED)\INFLUENZA A V
  13. FOLIC ACID [Concomitant]
     Active Substance: FOLIC ACID
  14. GLUCOSAMINE [Concomitant]
     Active Substance: GLUCOSAMINE
  15. LISINOPRIL [Concomitant]
     Active Substance: LISINOPRIL
  16. LUTEIN [Concomitant]
     Active Substance: LUTEIN
  17. GABAPENTIN [Concomitant]
     Active Substance: GABAPENTIN
  18. OMEGA 3 [Concomitant]
     Active Substance: CAPSAICIN
  19. ZYPREXA [Concomitant]
     Active Substance: OLANZAPINE

REACTIONS (2)
  - Off label use [Unknown]
  - No adverse event [Unknown]
